FAERS Safety Report 23718214 (Version 1)
Quarter: 2024Q2

REPORT INFORMATION
  Report Type: Spontaneous
  Country: US (occurrence: None)
  Receive Date: 20240406
  Receipt Date: 20240406
  Transmission Date: 20240716
  Serious: Yes (Death)
  Sender: FDA-Public Use
  Company Number: None

PATIENT
  Age: 5 Month
  Sex: Male
  Weight: 4.05 kg

DRUGS (8)
  1. SILDENAFIL [Suspect]
     Active Substance: SILDENAFIL
     Dosage: 0.4  ML 3 TIMES A DAY ORAL
     Route: 048
     Dates: start: 20231017
  2. ACETAMINOPHEN [Concomitant]
     Active Substance: ACETAMINOPHEN
     Dates: start: 20231017
  3. ASPIRIN [Concomitant]
     Active Substance: ASPIRIN
     Dates: start: 20231017
  4. Digoxin 50mcg/ml [Concomitant]
     Dates: start: 20231017
  5. Furosemide 10mg/ml [Concomitant]
     Dates: start: 20231017
  6. Konvomep2mg-84/ml [Concomitant]
     Dates: start: 20231017
  7. Pedia D-Vite 400u drops [Concomitant]
     Dates: start: 20231017
  8. Simethicone infant drops [Concomitant]
     Dates: start: 20231017

REACTIONS (1)
  - Hypoplastic left heart syndrome [None]

NARRATIVE: CASE EVENT DATE: 20240314
